FAERS Safety Report 7781168-6 (Version None)
Quarter: 2011Q3

REPORT INFORMATION
  Report Type: 
  Country: None (occurrence: None)
  Receive Date: 20110927
  Receipt Date: 20110926
  Transmission Date: 20111222
  Serious: Yes (Life-Threatening, Hospitalization, Disabling, Other)
  Sender: FDA-Public Use
  Company Number: PHFR2011GB03151

PATIENT
  Sex: Female

DRUGS (2)
  1. AMISULPRIDE [Suspect]
     Indication: PSYCHOTIC DISORDER
     Dosage: 100 MG/ DAY
     Route: 048
     Dates: start: 20070101
  2. CLOZAPINE [Suspect]
     Indication: SCHIZOPHRENIA
     Dosage: 300 MG/ DAY
     Route: 048
     Dates: start: 20070824, end: 20110726

REACTIONS (2)
  - LOCAL SWELLING [None]
  - SMALL CELL LUNG CANCER STAGE UNSPECIFIED [None]
